FAERS Safety Report 11976773 (Version 1)
Quarter: 2016Q1

REPORT INFORMATION
  Report Type: Spontaneous
  Country: AR (occurrence: AR)
  Receive Date: 20160129
  Receipt Date: 20160129
  Transmission Date: 20160526
  Serious: Yes (Other)
  Sender: FDA-Public Use
  Company Number: CHPA2016AR000987

PATIENT
  Sex: Male

DRUGS (1)
  1. OTRIVINA [Suspect]
     Active Substance: XYLOMETAZOLINE
     Indication: NASAL CONGESTION
     Dosage: UNK
     Route: 065
     Dates: start: 2013

REACTIONS (2)
  - Feeling of despair [Unknown]
  - Angiopathy [Unknown]
